FAERS Safety Report 4322268-2 (Version None)
Quarter: 2004Q1

REPORT INFORMATION
  Report Type: 
  Country: None (occurrence: None)
  Receive Date: 20040319
  Receipt Date: 20040308
  Transmission Date: 20041129
  Serious: Yes (Other)
  Sender: FDA-Public Use
  Company Number: 163-20785-04030241(0)

PATIENT
  Sex: 0

DRUGS (8)
  1. THALIDOMIDE(THALIDOMIDE) (50 MILLIGRAM, CAPSULES) [Suspect]
     Indication: WALDENSTROM'S MACROGLOBULINAEMIA
     Dosage: 50 MG, QD, ORAL; 50 -200 MG, ESCALATE EVERY 2 WEEKS ORAL
     Route: 048
  2. BIAXIN [Suspect]
     Indication: WALDENSTROM'S MACROGLOBULINAEMIA
     Dosage: 500 MG, BID, ORAL
     Route: 048
  3. DEXAMETHASONE [Suspect]
     Indication: WALDENSTROM'S MACROGLOBULINAEMIA
     Dosage: 40 MG, ONCE WEEKLY, ORAL
     Route: 048
  4. PYRIDOXINE HCL TAB [Concomitant]
  5. OMEPRAZOLE [Concomitant]
  6. CATHARTICS [Concomitant]
  7. ENTERIC COATED ASPIRIN (ACETYSALICYLIC ACID) [Concomitant]
  8. ANTICOAGULATION THERAPY [Concomitant]

REACTIONS (1)
  - LYMPHOMA [None]
